FAERS Safety Report 8173598-8 (Version None)
Quarter: 2012Q1

REPORT INFORMATION
  Report Type: 
  Country: None (occurrence: None)
  Receive Date: 20120229
  Receipt Date: 20120225
  Transmission Date: 20120608
  Serious: Yes (Other)
  Sender: FDA-Public Use
  Company Number: ID-PFIZER INC-2012051694

PATIENT

DRUGS (1)
  1. NORVASC [Suspect]

REACTIONS (1)
  - NEPHROLITHIASIS [None]
